FAERS Safety Report 25265763 (Version 1)
Quarter: 2025Q2

REPORT INFORMATION
  Report Type: Spontaneous
  Country: US (occurrence: US)
  Receive Date: 20250503
  Receipt Date: 20250503
  Transmission Date: 20250716
  Serious: Yes (Other)
  Sender: CROWN LABORATORIES, INC.
  Company Number: US-Crown Laboratories, Inc.-2176066

PATIENT
  Age: 83 Year
  Sex: Female
  Weight: 47.6 kg

DRUGS (3)
  1. ALACORT [Suspect]
     Active Substance: HYDROCORTISONE
     Dates: start: 20250418
  2. ALLEGRA [Concomitant]
     Active Substance: FEXOFENADINE HYDROCHLORIDE
  3. LEVOTHYROXINE [Concomitant]
     Active Substance: LEVOTHYROXINE

REACTIONS (3)
  - Abdominal discomfort [Recovered/Resolved]
  - Bowel movement irregularity [Recovered/Resolved]
  - Muscle spasms [Recovered/Resolved]

NARRATIVE: CASE EVENT DATE: 20250418
